FAERS Safety Report 5341565-5 (Version None)
Quarter: 2007Q2

REPORT INFORMATION
  Report Type: 
  Country: None (occurrence: None)
  Receive Date: 20070601
  Receipt Date: 20070523
  Transmission Date: 20071010
  Serious: Yes (Disabling)
  Sender: FDA-Public Use
  Company Number: DE-JNJFOC-20070505347

PATIENT
  Age: 57 Year
  Sex: Male

DRUGS (2)
  1. TAVANIC [Suspect]
     Indication: C-REACTIVE PROTEIN INCREASED
     Route: 048
  2. CYCLOSPORINE [Concomitant]
     Route: 065

REACTIONS (1)
  - BLINDNESS [None]
